FAERS Safety Report 7538266-1 (Version None)
Quarter: 2011Q2

REPORT INFORMATION
  Report Type: 
  Country: None (occurrence: None)
  Receive Date: 20110609
  Receipt Date: 20030526
  Transmission Date: 20111010
  Serious: Yes (Life-Threatening, Other)
  Sender: FDA-Public Use
  Company Number: PHHO2003CA05151

PATIENT
  Sex: Female

DRUGS (6)
  1. ACCUPRIL [Concomitant]
     Dosage: UNKNOWN
  2. ATIVAN [Concomitant]
     Dosage: UNKNOWN
  3. LAMOTRIGINE [Concomitant]
     Dosage: UNKNOWN
  4. CLOZAPINE [Suspect]
     Dates: start: 19980326
  5. SYNTHROID [Concomitant]
     Dosage: UNKNOWN
  6. CHEMOTHERAPEUTICS,OTHER [Suspect]
     Indication: NEOPLASM MALIGNANT
     Dosage: UNKNOWN
     Dates: start: 20030401

REACTIONS (2)
  - AGRANULOCYTOSIS [None]
  - NEOPLASM MALIGNANT [None]
